FAERS Safety Report 18460408 (Version 3)
Quarter: 2021Q2

REPORT INFORMATION
  Report Type: Spontaneous
  Country: US (occurrence: US)
  Receive Date: 20201104
  Receipt Date: 20210629
  Transmission Date: 20210717
  Serious: No
  Sender: FDA-Public Use
  Company Number: US-LUPIN PHARMACEUTICALS INC.-2020-07090

PATIENT
  Age: 77 Year
  Sex: Female
  Weight: 66.67 kg

DRUGS (5)
  1. LEFLUNOMIDE TABLETS, 20 MG [Suspect]
     Active Substance: LEFLUNOMIDE
     Indication: PRODUCT USED FOR UNKNOWN INDICATION
     Dosage: 20 MILLIGRAM, QD
     Route: 048
  2. FLUOCINONIDE TOPICAL SOLUTION USP, 0.05% [Suspect]
     Active Substance: FLUOCINONIDE
     Indication: ALOPECIA
     Dosage: UNK UNK, QD
     Route: 061
     Dates: start: 20200901, end: 20200910
  3. HYDROXYCHLOROQUINE [Concomitant]
     Active Substance: HYDROXYCHLOROQUINE
     Indication: RHEUMATOID ARTHRITIS
     Dosage: 100 MILLIGRAM, BID
     Route: 065
  4. LASIX [Concomitant]
     Active Substance: FUROSEMIDE
     Indication: FLUID RETENTION
     Dosage: 20 MILLIGRAM, BID
     Route: 065
  5. PREDNISOLONE. [Concomitant]
     Active Substance: PREDNISOLONE
     Indication: RHEUMATOID ARTHRITIS
     Dosage: 5 MILLIGRAM, BID
     Route: 065

REACTIONS (7)
  - Product quality issue [Unknown]
  - Chest discomfort [Not Recovered/Not Resolved]
  - Skin disorder [Recovered/Resolved]
  - Dizziness [Not Recovered/Not Resolved]
  - Off label use [Unknown]
  - Abdominal pain upper [Not Recovered/Not Resolved]
  - Paraesthesia [Not Recovered/Not Resolved]

NARRATIVE: CASE EVENT DATE: 20200901
